FAERS Safety Report 13655378 (Version 1)
Quarter: 2017Q2

REPORT INFORMATION
  Report Type: Report from Study
  Country: CA (occurrence: CA)
  Receive Date: 20170615
  Receipt Date: 20170615
  Transmission Date: 20170830
  Serious: Yes (Death, Other)
  Sender: FDA-Public Use
  Company Number: PHHY2017CA080081

PATIENT
  Age: 69 Year
  Sex: Female

DRUGS (2)
  1. MEKINIST [Suspect]
     Active Substance: TRAMETINIB DIMETHYL SULFOXIDE
     Indication: METASTATIC MALIGNANT MELANOMA
     Dosage: 2 MG, UNK
     Route: 048
     Dates: start: 20170525, end: 20170607
  2. TAFINLAR [Suspect]
     Active Substance: DABRAFENIB MESYLATE
     Indication: METASTATIC MALIGNANT MELANOMA
     Dosage: 300 MG, UNK
     Route: 048
     Dates: start: 20170525, end: 20170607

REACTIONS (5)
  - Gait disturbance [Unknown]
  - Rash erythematous [Not Recovered/Not Resolved]
  - Alopecia [Unknown]
  - Death [Fatal]
  - Pulmonary thrombosis [Unknown]

NARRATIVE: CASE EVENT DATE: 20170609
